FAERS Safety Report 8127649-7 (Version None)
Quarter: 2011Q4

REPORT INFORMATION
  Report Type: 
  Country: None (occurrence: None)
  Receive Date: 20111230
  Receipt Date: 20111012
  Transmission Date: 20120403
  Serious: Yes (Other)
  Sender: FDA-Public Use
  Company Number: 304861USA

PATIENT
  Sex: Male

DRUGS (1)
  1. REVIA [Suspect]
     Dosage: ORAL
     Route: 048

REACTIONS (6)
  - MALAISE [None]
  - MYALGIA [None]
  - WITHDRAWAL SYNDROME [None]
  - DIARRHOEA [None]
  - INSOMNIA [None]
  - NAUSEA [None]
